FAERS Safety Report 15742657 (Version 1)
Quarter: 2018Q4

REPORT INFORMATION
  Report Type: Spontaneous
  Country: GB (occurrence: GB)
  Receive Date: 20181219
  Receipt Date: 20181219
  Transmission Date: 20190205
  Serious: Yes (Death, Hospitalization)
  Sender: FDA-Public Use
  Company Number: GB-BAXTER-2018BAX030345

PATIENT
  Age: 79 Year
  Sex: Male

DRUGS (7)
  1. SALBUTAMOL [Concomitant]
     Active Substance: ALBUTEROL
     Indication: DYSPNOEA
     Dosage: DOSE: 4 MG TDS
     Route: 048
     Dates: end: 19920625
  2. BURINEX [Concomitant]
     Active Substance: BUMETANIDE
     Indication: PRODUCT USED FOR UNKNOWN INDICATION
     Dosage: DOSE: 1 MG DAILY
     Route: 048
     Dates: end: 19920625
  3. PROPOFOL 10MG/ML EMULSION FOR INJECTION/INFUSION [Suspect]
     Active Substance: PROPOFOL
     Indication: PRODUCT USED FOR UNKNOWN INDICATION
     Dosage: DOSE: 120 MG
     Route: 042
     Dates: start: 19920618, end: 19920618
  4. NITROUS OXIDE. [Suspect]
     Active Substance: NITROUS OXIDE
     Indication: ANAESTHESIA
     Route: 065
     Dates: start: 19920618, end: 19920618
  5. FENTANYL. [Suspect]
     Active Substance: FENTANYL
     Indication: PRODUCT USED FOR UNKNOWN INDICATION
     Dosage: DOSE: 125 MCG
     Route: 042
     Dates: start: 19920618, end: 19920618
  6. AERRANE 100% LIQUID INHALATION VAPOUR [Suspect]
     Active Substance: ISOFLURANE
     Indication: ANAESTHESIA
     Route: 065
     Dates: start: 19920618, end: 19920618
  7. OXYGEN. [Suspect]
     Active Substance: OXYGEN
     Indication: ANAESTHESIA
     Route: 065
     Dates: start: 19920618, end: 19920618

REACTIONS (1)
  - Hepatic necrosis [Fatal]
